FAERS Safety Report 9128073 (Version 2)
Quarter: 2016Q2

REPORT INFORMATION
  Report Type: Report from Study
  Country: US (occurrence: US)
  Receive Date: 20130125
  Receipt Date: 20160526
  Transmission Date: 20160815
  Serious: Yes (Other)
  Sender: FDA-Public Use
  Company Number: US-ROCHE-1180611

PATIENT
  Age: 63 Year
  Sex: Female
  Weight: 99.34 kg

DRUGS (14)
  1. RITUXAN [Suspect]
     Active Substance: RITUXIMAB
     Indication: VASCULITIS
  2. IMURAN [Concomitant]
     Active Substance: AZATHIOPRINE
     Indication: HEPATITIS
     Route: 048
     Dates: start: 20120727
  3. TYLENOL [Concomitant]
     Active Substance: ACETAMINOPHEN
     Route: 048
  4. TYLENOL [Concomitant]
     Active Substance: ACETAMINOPHEN
     Route: 065
  5. RITUXAN [Suspect]
     Active Substance: RITUXIMAB
     Indication: RENAL FAILURE
     Route: 042
     Dates: start: 200808, end: 20130111
  6. RITUXAN [Suspect]
     Active Substance: RITUXIMAB
     Indication: PARAPROTEINAEMIA
  7. RITUXAN [Suspect]
     Active Substance: RITUXIMAB
     Indication: HEPATITIS C
  8. NORVASC [Concomitant]
     Active Substance: AMLODIPINE BESYLATE
     Indication: HYPERTENSION
     Route: 048
     Dates: start: 20120727
  9. AZATHIOPRINE. [Concomitant]
     Active Substance: AZATHIOPRINE
  10. RITUXAN [Suspect]
     Active Substance: RITUXIMAB
     Indication: CRYOGLOBULINAEMIA
     Dosage: IN 5 % DEXTROSE IN 500 ML WATER
     Route: 041
     Dates: start: 2006
  11. RITUXAN [Suspect]
     Active Substance: RITUXIMAB
     Indication: NEPHRITIS
  12. SOLU-MEDROL [Concomitant]
     Active Substance: METHYLPREDNISOLONE SODIUM SUCCINATE
     Route: 065
  13. RITUXAN [Suspect]
     Active Substance: RITUXIMAB
     Indication: RENAL NEOPLASM
  14. LISINOPRIL. [Concomitant]
     Active Substance: LISINOPRIL
     Indication: HYPERTENSION
     Route: 048
     Dates: start: 20120702

REACTIONS (18)
  - Asthenia [Unknown]
  - Somnolence [Unknown]
  - Grunting [Unknown]
  - Dyspnoea [Unknown]
  - Dizziness [Recovered/Resolved]
  - Wheezing [Recovered/Resolved]
  - Wheezing [Recovered/Resolved]
  - Nerve stimulation test abnormal [Unknown]
  - Loss of consciousness [Unknown]
  - Urinary incontinence [Unknown]
  - Pruritus [Unknown]
  - Back pain [Unknown]
  - Hyperhidrosis [Unknown]
  - Mental status changes [Recovered/Resolved]
  - Urticaria [Recovered/Resolved]
  - Anal incontinence [Unknown]
  - Off label use [Unknown]
  - Urticaria [Unknown]

NARRATIVE: CASE EVENT DATE: 20130111
